FAERS Safety Report 9355178 (Version 2)
Quarter: 2013Q3

REPORT INFORMATION
  Report Type: Report from Study
  Country: CA (occurrence: CA)
  Receive Date: 20130619
  Receipt Date: 20130705
  Transmission Date: 20140515
  Serious: Yes (Other)
  Sender: FDA-Public Use
  Company Number: PHHY2013CA061846

PATIENT
  Age: 70 Year
  Sex: 0

DRUGS (1)
  1. ACLASTA/ZOLEDRONATE [Suspect]
     Indication: OSTEOPOROSIS
     Dosage: 100ML, YEARLY
     Route: 042
     Dates: start: 20090526

REACTIONS (1)
  - Colitis ischaemic [Not Recovered/Not Resolved]
